FAERS Safety Report 8831980 (Version 3)
Quarter: 2012Q4

REPORT INFORMATION
  Report Type: 
  Country: US (occurrence: US)
  Receive Date: 20121009
  Receipt Date: 20121025
  Transmission Date: 20130627
  Serious: Yes (Life-Threatening, Hospitalization, Other)
  Sender: FDA-Public Use
  Company Number: US-GENZYME-CLOF-1002342

PATIENT
  Age: 6 Year
  Sex: Female
  Weight: 30.6 kg

DRUGS (6)
  1. CLOLAR [Suspect]
     Indication: LYMPHOCYTIC LEUKAEMIA
     Dosage: 30 mg/m2, over 2 hours, qd
     Route: 042
     Dates: start: 20120827, end: 20120831
  2. CYCLOPHOSPHAMIDE [Suspect]
     Indication: LYMPHOCYTIC LEUKAEMIA
     Dosage: 440 mg/m2, over 15-30 min, qd
     Route: 042
     Dates: start: 20120827, end: 20120831
  3. ETOPOSIDE [Suspect]
     Indication: LYMPHOCYTIC LEUKAEMIA
     Dosage: 100 mg/m2, over 60-120 min, qd
     Route: 042
     Dates: start: 20120827, end: 20120831
  4. PEG-L ASPARAGINASE [Suspect]
     Indication: LYMPHOCYTIC LEUKAEMIA
     Dosage: UNK, ONCE
     Route: 042
     Dates: start: 20120910, end: 20120910
  5. VINCRISTINE [Suspect]
     Indication: LYMPHOCYTIC LEUKAEMIA
     Dosage: 1.5 mg/m2, over 1 min, weekly x 2 weeks
     Route: 042
     Dates: start: 20120910, end: 20120917
  6. CHLORHEXIDINE [Concomitant]
     Indication: INFECTION PROPHYLAXIS
     Dosage: qd
     Route: 065
     Dates: start: 2012

REACTIONS (7)
  - Appendicitis [Recovered/Resolved]
  - Pancytopenia [Not Recovered/Not Resolved]
  - Haematemesis [Recovered/Resolved]
  - Respiratory distress [Recovered/Resolved]
  - Fungal sepsis [Not Recovered/Not Resolved]
  - Bacteraemia [Recovered/Resolved]
  - Anaphylactic reaction [Recovered/Resolved]
